FAERS Safety Report 11272827 (Version 1)
Quarter: 2015Q3

REPORT INFORMATION
  Report Type: Spontaneous
  Country: US (occurrence: None)
  Receive Date: 20150713
  Receipt Date: 20150713
  Transmission Date: 20151125
  Serious: Yes (Hospitalization, Other)
  Sender: FDA-Public Use
  Company Number: None

PATIENT
  Age: 75 Year
  Sex: Female
  Weight: 78 kg

DRUGS (1)
  1. PROPOFOL 10MG/ML [Suspect]
     Active Substance: PROPOFOL
     Indication: SEDATION
     Dosage: 0.5 MG/KG/MIN, CONTINUOUS
     Route: 042
     Dates: start: 20150709, end: 20150709

REACTIONS (1)
  - Lactic acidosis [None]

NARRATIVE: CASE EVENT DATE: 20150709
